FAERS Safety Report 12526497 (Version 1)
Quarter: 2016Q3

REPORT INFORMATION
  Report Type: Report from Study
  Country: US (occurrence: US)
  Receive Date: 20160705
  Receipt Date: 20160705
  Transmission Date: 20161109
  Serious: Yes (Hospitalization, Other)
  Sender: FDA-Public Use
  Company Number: US-SUN PHARMACEUTICAL INDUSTRIES LTD-2015US-106226

PATIENT
  Age: 39 Day
  Sex: Male
  Weight: 3035 kg

DRUGS (3)
  1. PREZISTA [Suspect]
     Active Substance: DARUNAVIR ETHANOLATE
     Indication: HIV INFECTION
     Dosage: UNK
     Route: 064
     Dates: start: 20150427
  2. COMPLERA [Suspect]
     Active Substance: EMTRICITABINE\RILPIVIRINE HYDROCHLORIDE\TENOFOVIR DISOPROXIL FUMARATE
     Indication: HIV INFECTION
     Dosage: UNK
     Route: 064
     Dates: start: 20150226
  3. ZIDOVUDINE. [Suspect]
     Active Substance: ZIDOVUDINE
     Indication: HIV INFECTION
     Dosage: 600 MG, DAILY
     Route: 064
     Dates: start: 20150226

REACTIONS (8)
  - Vomiting [Recovered/Resolved]
  - Jaundice [Unknown]
  - Jaundice neonatal [None]
  - Foetal exposure during pregnancy [Recovered/Resolved]
  - Meconium in amniotic fluid [Unknown]
  - Weight decrease neonatal [None]
  - Infantile vomiting [None]
  - Weight decreased [Unknown]

NARRATIVE: CASE EVENT DATE: 20150811
